FAERS Safety Report 6757354-0 (Version None)
Quarter: 2010Q2

REPORT INFORMATION
  Report Type: 
  Country: None (occurrence: None)
  Receive Date: 20100607
  Receipt Date: 20100526
  Transmission Date: 20101027
  Serious: No
  Sender: FDA-Public Use
  Company Number: US-BIOGENIDEC-2010BI018064

PATIENT
  Age: 42 Year
  Sex: Female

DRUGS (1)
  1. TYSABRI [Suspect]
     Indication: MULTIPLE SCLEROSIS
     Route: 042
     Dates: start: 20081216

REACTIONS (8)
  - CERVIX ENLARGEMENT [None]
  - FEMALE GENITAL OPERATION [None]
  - INCREASED UPPER AIRWAY SECRETION [None]
  - MENORRHAGIA [None]
  - METRORRHAGIA [None]
  - OVARIAN CYST [None]
  - UTERINE POLYP [None]
  - VAGINAL HAEMORRHAGE [None]
